FAERS Safety Report 7790090-0 (Version None)
Quarter: 2011Q3

REPORT INFORMATION
  Report Type: 
  Country: None (occurrence: None)
  Receive Date: 20110930
  Receipt Date: 20100920
  Transmission Date: 20111222
  Serious: Yes (Hospitalization)
  Sender: FDA-Public Use
  Company Number: US-ASTRAZENECA-2010SE44059

PATIENT
  Age: 761 Month
  Sex: Female
  Weight: 77.1 kg

DRUGS (4)
  1. VITAMIN D [Concomitant]
  2. BENECAR [Concomitant]
  3. VERAPAMIL EXTENDED-RELEASE [Concomitant]
  4. ARIMIDEX [Suspect]
     Indication: BREAST CANCER
     Route: 048
     Dates: start: 20060501

REACTIONS (1)
  - PULMONARY EMBOLISM [None]
